FAERS Safety Report 16207879 (Version 1)
Quarter: 2019Q2

REPORT INFORMATION
  Report Type: Spontaneous
  Country: CN (occurrence: CN)
  Receive Date: 20190417
  Receipt Date: 20190417
  Transmission Date: 20190711
  Serious: Yes (Other)
  Sender: FDA-Public Use
  Company Number: CN-ROCHE-2301454

PATIENT
  Age: 42 Year
  Sex: Female

DRUGS (28)
  1. METHOTREXATE. [Concomitant]
     Active Substance: METHOTREXATE
     Dosage: PER WEEK
     Route: 037
     Dates: start: 20180620, end: 20180820
  2. PACLITAXEL. [Concomitant]
     Active Substance: PACLITAXEL
     Indication: BREAST CANCER
     Dosage: DAY1;6 CYCLES
     Route: 065
     Dates: start: 20170518
  3. HERCEPTIN [Suspect]
     Active Substance: TRASTUZUMAB
     Route: 041
     Dates: start: 20181018
  4. GOSERELIN [Concomitant]
     Active Substance: GOSERELIN
     Route: 065
     Dates: start: 20171012
  5. METHOTREXATE. [Concomitant]
     Active Substance: METHOTREXATE
     Route: 037
     Dates: start: 20180829, end: 20190201
  6. HERCEPTIN [Suspect]
     Active Substance: TRASTUZUMAB
     Indication: BREAST CANCER
     Dosage: THE FIRST TIME
     Route: 041
     Dates: start: 20150302, end: 20160229
  7. CAPECITABINE. [Concomitant]
     Active Substance: CAPECITABINE
     Dosage: 6 CYCLES;DAY1 TO DAY14
     Route: 065
     Dates: start: 20170518
  8. CYCLOPHOSPHAMIDE. [Concomitant]
     Active Substance: CYCLOPHOSPHAMIDE
     Indication: BREAST CANCER
     Dosage: 4 CYCLES;DAY1
     Route: 065
  9. DOCETAXEL. [Concomitant]
     Active Substance: DOCETAXEL
     Indication: BREAST CANCER
     Dosage: 4 CYCLES;DAY1
     Route: 065
     Dates: start: 20150302, end: 20160229
  10. METHOTREXATE. [Concomitant]
     Active Substance: METHOTREXATE
     Indication: BREAST CANCER
     Dosage: PER WEEK
     Route: 037
     Dates: start: 20180411
  11. DEXAMETHASONE. [Concomitant]
     Active Substance: DEXAMETHASONE
     Indication: BREAST CANCER
     Dosage: PER WEEK
     Route: 037
     Dates: start: 20180411
  12. DEXAMETHASONE. [Concomitant]
     Active Substance: DEXAMETHASONE
     Dosage: PER WEEK
     Route: 037
     Dates: start: 20180620, end: 20180820
  13. TEMOZOLOMIDE. [Concomitant]
     Active Substance: TEMOZOLOMIDE
     Indication: BREAST CANCER
     Dosage: DAY1 TO DAY5
     Route: 065
     Dates: start: 20181119, end: 20190203
  14. HERCEPTIN [Suspect]
     Active Substance: TRASTUZUMAB
     Route: 037
     Dates: start: 20180411
  15. CAPECITABINE. [Concomitant]
     Active Substance: CAPECITABINE
     Route: 048
     Dates: start: 201902
  16. FULVESTRANT. [Concomitant]
     Active Substance: FULVESTRANT
     Route: 065
     Dates: start: 20171012
  17. ETOPOSIDE. [Concomitant]
     Active Substance: ETOPOSIDE
     Dosage: DAY1 TO DAY4
     Route: 065
     Dates: start: 20181018
  18. HERCEPTIN [Suspect]
     Active Substance: TRASTUZUMAB
     Route: 041
     Dates: start: 2018
  19. HERCEPTIN [Suspect]
     Active Substance: TRASTUZUMAB
     Route: 037
     Dates: start: 20180620, end: 20180820
  20. HERCEPTIN [Suspect]
     Active Substance: TRASTUZUMAB
     Route: 041
     Dates: start: 20180927
  21. EPIRUBICIN [Concomitant]
     Active Substance: EPIRUBICIN
     Indication: BREAST CANCER
     Dosage: 4 CYCLES;DAY1 AND DAY2
     Route: 065
  22. HERCEPTIN [Suspect]
     Active Substance: TRASTUZUMAB
     Route: 041
     Dates: start: 201503, end: 20160229
  23. HERCEPTIN [Suspect]
     Active Substance: TRASTUZUMAB
     Dosage: DAY1
     Route: 041
     Dates: start: 20170920
  24. HERCEPTIN [Suspect]
     Active Substance: TRASTUZUMAB
     Route: 041
     Dates: start: 20171012
  25. CAPECITABINE. [Concomitant]
     Active Substance: CAPECITABINE
     Indication: BREAST CANCER
     Dosage: 1.5G EARLY AND 1.0G LATE
     Route: 065
     Dates: start: 20170328, end: 20170505
  26. TAMOXIFEN [Concomitant]
     Active Substance: TAMOXIFEN
     Indication: BREAST CANCER
     Route: 048
     Dates: start: 2016
  27. HERCEPTIN [Suspect]
     Active Substance: TRASTUZUMAB
     Route: 037
     Dates: start: 20180829, end: 20190201
  28. ETOPOSIDE. [Concomitant]
     Active Substance: ETOPOSIDE
     Indication: BREAST CANCER
     Dosage: DAY1 TO DAY4
     Route: 065
     Dates: start: 20180927

REACTIONS (4)
  - Intentional product use issue [Unknown]
  - Hepatic cyst [Unknown]
  - Haemangioma of liver [Unknown]
  - Off label use [Unknown]
